FAERS Safety Report 6598147-7 (Version None)
Quarter: 2010Q1

REPORT INFORMATION
  Report Type: 
  Country: None (occurrence: None)
  Receive Date: 20100224
  Receipt Date: 20050216
  Transmission Date: 20100710
  Serious: No
  Sender: FDA-Public Use
  Company Number: US-ALLERGAN-200501703

PATIENT
  Age: 53 Year
  Sex: Female

DRUGS (1)
  1. BOTOX [Suspect]
     Indication: MUSCLE SPASTICITY
     Dosage: BASE OF SKULL, ACROSS SHOULDERS, UP NECK
     Route: 030
     Dates: start: 20050113, end: 20050113

REACTIONS (10)
  - ASTHENIA [None]
  - EYELID PTOSIS [None]
  - FACIAL PALSY [None]
  - HEADACHE [None]
  - HYPOAESTHESIA FACIAL [None]
  - HYPOAESTHESIA ORAL [None]
  - NAUSEA [None]
  - NECK PAIN [None]
  - PAIN [None]
  - SKIN TIGHTNESS [None]
